FAERS Safety Report 5052054-X (Version None)
Quarter: 2006Q3

REPORT INFORMATION
  Report Type: 
  Country: None (occurrence: None)
  Receive Date: 20060711
  Receipt Date: 20060705
  Transmission Date: 20061208
  Serious: Yes (Other)
  Sender: FDA-Public Use
  Company Number: GB-2006-017860

PATIENT

DRUGS (1)
  1. FLUDARABINE [Suspect]

REACTIONS (1)
  - MYELITIS TRANSVERSE [None]
